FAERS Safety Report 6760482-7 (Version None)
Quarter: 2010Q2

REPORT INFORMATION
  Report Type: 
  Country: None (occurrence: None)
  Receive Date: 20100602
  Receipt Date: 20100212
  Transmission Date: 20101027
  Serious: Yes (Other)
  Sender: FDA-Public Use
  Company Number: WAES 1002USA02010

PATIENT
  Sex: Male

DRUGS (1)
  1. EMEND [Suspect]
     Dosage: PO
     Route: 048

REACTIONS (1)
  - STEVENS-JOHNSON SYNDROME [None]
